FAERS Safety Report 8352349-8 (Version None)
Quarter: 2012Q2

REPORT INFORMATION
  Report Type: 
  Country: None (occurrence: None)
  Receive Date: 20120511
  Receipt Date: 20120508
  Transmission Date: 20120825
  Serious: Yes (Other)
  Sender: FDA-Public Use
  Company Number: US-PFIZER INC-2012112692

PATIENT
  Sex: Male
  Weight: 68 kg

DRUGS (3)
  1. PROCARDIA XL [Suspect]
     Indication: HYPERTENSION
     Dosage: 60 MG, 1X/DAY
     Route: 048
     Dates: start: 19920401
  2. PROCARDIA XL [Suspect]
     Dosage: 30 MG, 1X/DAY
     Route: 048
     Dates: start: 19970101
  3. PROCARDIA XL [Suspect]
     Dosage: 30 MG, EVERY OTHER DAY
     Route: 048

REACTIONS (1)
  - CARDIAC DISORDER [None]
